FAERS Safety Report 5947729-1 (Version None)
Quarter: 2008Q4

REPORT INFORMATION
  Report Type: 
  Country: None (occurrence: None)
  Receive Date: 20081111
  Receipt Date: 20081030
  Transmission Date: 20090506
  Serious: Yes (Other)
  Sender: FDA-Public Use
  Company Number: US-JNJFOC-20081100262

PATIENT
  Sex: Female
  Weight: 70.31 kg

DRUGS (2)
  1. REMICADE [Suspect]
     Indication: CROHN'S DISEASE
     Dosage: 10 YEARS DURATION
     Route: 042
  2. IMURAN [Suspect]
     Indication: CROHN'S DISEASE

REACTIONS (3)
  - ABASIA [None]
  - LIVER DISORDER [None]
  - PARAESTHESIA [None]
